FAERS Safety Report 8528629-X (Version None)
Quarter: 2012Q3

REPORT INFORMATION
  Report Type: 
  Country: None (occurrence: None)
  Receive Date: 20120723
  Receipt Date: 20120710
  Transmission Date: 20120928
  Serious: Yes (Hospitalization)
  Sender: FDA-Public Use
  Company Number: US-BIOGENIDEC-2012BI025302

PATIENT
  Age: 70 Year
  Sex: Male

DRUGS (2)
  1. TYSABRI [Suspect]
     Route: 042
     Dates: start: 20120313
  2. TYSABRI [Suspect]
     Indication: MULTIPLE SCLEROSIS
     Route: 042
     Dates: start: 20100608, end: 20110324

REACTIONS (1)
  - ASTHENIA [None]
